FAERS Safety Report 8799567 (Version 1)
Quarter: 2012Q4

REPORT INFORMATION
  Report Type: 
  Country: US (occurrence: US)
  Receive Date: 20120919
  Receipt Date: 20120919
  Transmission Date: 20130627
  Serious: No
  Sender: FDA-Public Use
  Company Number: US-PFIZER INC-2012228180

PATIENT
  Age: 61 Year
  Sex: Male
  Weight: 68.03 kg

DRUGS (8)
  1. SUTENT [Suspect]
     Indication: MALIGNANT NEOPLASM OF ISLETS OF LANGERHANS
     Dosage: 37.5 mg, daily (25+12.5) mg
     Dates: start: 20120501
  2. SUTENT [Suspect]
     Indication: METASTASES TO LIVER
  3. WARFARIN [Concomitant]
     Dosage: UNK
  4. LASIX [Concomitant]
     Dosage: UNK
  5. EQUATE [Concomitant]
     Indication: DYSPEPSIA
     Dosage: UNK
  6. VITAMINS [Concomitant]
  7. POTASSIUM [Concomitant]
     Dosage: UNK
  8. STOOL SOFTENER [Concomitant]

REACTIONS (8)
  - Pruritus [Unknown]
  - Tinea pedis [Recovering/Resolving]
  - Fatigue [Unknown]
  - Weight increased [Unknown]
  - Abdominal pain [Unknown]
  - Breakthrough pain [Unknown]
  - Anxiety [Unknown]
  - Sleep disorder [Unknown]
